FAERS Safety Report 12976960 (Version 3)
Quarter: 2016Q4

REPORT INFORMATION
  Report Type: Report from Study
  Country: BE (occurrence: BE)
  Receive Date: 20161128
  Receipt Date: 20161223
  Transmission Date: 20170207
  Serious: Yes (Other)
  Sender: FDA-Public Use
  Company Number: PHHY2016BE162544

PATIENT
  Age: 19 Year
  Sex: Female

DRUGS (1)
  1. GILENYA [Suspect]
     Active Substance: FINGOLIMOD HYDROCHLORIDE
     Indication: MULTIPLE SCLEROSIS
     Dosage: 0.5 MG, QD
     Route: 048
     Dates: start: 20141208, end: 20161124

REACTIONS (2)
  - Lymphocyte count decreased [Recovering/Resolving]
  - Skin papilloma [Unknown]

NARRATIVE: CASE EVENT DATE: 20141208
